FAERS Safety Report 4690888-1 (Version None)
Quarter: 2005Q2

REPORT INFORMATION
  Report Type: 
  Country: None (occurrence: None)
  Receive Date: 20050615
  Receipt Date: 20041117
  Transmission Date: 20051028
  Serious: Yes (Other)
  Sender: FDA-Public Use
  Company Number: PHHO2004JP16325

PATIENT
  Age: 63 Year
  Sex: Female
  Weight: 50 kg

DRUGS (15)
  1. GLEEVEC [Suspect]
     Indication: GASTROINTESTINAL STROMAL TUMOUR
     Dosage: UNK, NO TREATMENT
     Dates: start: 20040228, end: 20040531
  2. GLEEVEC [Suspect]
     Dosage: 10 MG, QD
     Route: 048
     Dates: start: 20040601, end: 20040621
  3. GLEEVEC [Suspect]
     Dosage: 50 MG, QD
     Route: 048
     Dates: start: 20040622, end: 20040628
  4. GLEEVEC [Suspect]
     Dosage: 100 MG, QD
     Route: 048
     Dates: start: 20040629, end: 20040801
  5. GLEEVEC [Suspect]
     Dosage: UNK, NO TREATMENT
     Dates: start: 20040802, end: 20040808
  6. GLEEVEC [Suspect]
     Dosage: 50 MG, QD
     Route: 048
     Dates: start: 20040809, end: 20040816
  7. GLEEVEC [Suspect]
     Dosage: UNK, NO TREATMENT
     Dates: start: 20040817, end: 20040920
  8. GLEEVEC [Suspect]
     Dosage: 10 MG, QD
     Route: 048
     Dates: start: 20040921, end: 20041004
  9. GLEEVEC [Suspect]
     Dosage: 20 MG, QD
     Route: 048
     Dates: start: 20041005
  10. GLEEVEC [Suspect]
     Dosage: 400 MG, QD
     Route: 048
     Dates: start: 20031007, end: 20031016
  11. GLEEVEC [Suspect]
     Dosage: NO TREATMENT
     Dates: start: 20031017, end: 20031104
  12. GLEEVEC [Suspect]
     Dosage: 200 MG, QD
     Route: 048
     Dates: start: 20031105, end: 20031226
  13. GLEEVEC [Suspect]
     Dosage: NO TREATMENT
     Dates: start: 20031227, end: 20040216
  14. GLEEVEC [Suspect]
     Dosage: 100 MG, QD
     Route: 048
     Dates: start: 20040217, end: 20040227
  15. ALLELOCK [Concomitant]
     Indication: RASH

REACTIONS (7)
  - ALANINE AMINOTRANSFERASE INCREASED [None]
  - ASPARTATE AMINOTRANSFERASE INCREASED [None]
  - DUODENAL ULCER [None]
  - EOSINOPHILIA [None]
  - PLATELET COUNT DECREASED [None]
  - RASH [None]
  - WHITE BLOOD CELL COUNT DECREASED [None]
